FAERS Safety Report 4332752-3 (Version None)
Quarter: 2004Q1

REPORT INFORMATION
  Report Type: 
  Country: None (occurrence: None)
  Receive Date: 20040330
  Receipt Date: 20040317
  Transmission Date: 20041129
  Serious: Yes (Hospitalization)
  Sender: FDA-Public Use
  Company Number: B01200400524

PATIENT
  Age: 53 Year
  Sex: Male

DRUGS (7)
  1. (OXALIPLATIN) - SOLUTION- 135 MG [Suspect]
     Indication: COLORECTAL CANCER
     Dosage: 135 MG Q2W (CUMULATIVE DOSE: 615 MG), INTRAVENOUS NOS
     Route: 042
     Dates: start: 20040309, end: 20040309
  2. (OXALIPLATIN) - SOLUTION- 135 MG [Suspect]
     Indication: METASTASES TO LIVER
     Dosage: 135 MG Q2W (CUMULATIVE DOSE: 615 MG), INTRAVENOUS NOS
     Route: 042
     Dates: start: 20040309, end: 20040309
  3. FLUOROURACIL [Suspect]
     Dosage: SEE IMAGE
     Route: 042
     Dates: start: 20040309, end: 20040310
  4. LEUCOVORIN - SOLUTION - 360 MG [Suspect]
     Dosage: 360 MG Q2W CUMULATIVE DOSE: 1500 MG), INTRAVENOUS
     Route: 042
     Dates: start: 20040309, end: 20040310
  5. TROPISETRON [Concomitant]
  6. METOCLOPRAMIDE [Concomitant]
  7. DEXAMETHASONE [Concomitant]

REACTIONS (10)
  - ABDOMINAL PAIN [None]
  - ANOREXIA [None]
  - BLOOD CALCIUM INCREASED [None]
  - BLOOD GLUCOSE DECREASED [None]
  - DEHYDRATION [None]
  - DIABETIC KETOACIDOSIS [None]
  - KETOSIS [None]
  - NAUSEA [None]
  - TACHYPNOEA [None]
  - VOMITING [None]
